FAERS Safety Report 24138812 (Version 3)
Quarter: 2024Q3

REPORT INFORMATION
  Report Type: Report from Study
  Country: US (occurrence: US)
  Receive Date: 20240725
  Receipt Date: 20240823
  Transmission Date: 20241017
  Serious: Yes (Hospitalization, Other)
  Sender: ABBVIE
  Company Number: US-ABBVIE-5851185

PATIENT
  Sex: Male
  Weight: 73 kg

DRUGS (4)
  1. IMBRUVICA [Suspect]
     Active Substance: IBRUTINIB
     Indication: Mantle cell lymphoma
     Route: 048
     Dates: start: 2020, end: 20240608
  2. IMBRUVICA [Suspect]
     Active Substance: IBRUTINIB
     Indication: Mantle cell lymphoma
     Route: 048
     Dates: start: 20240612
  3. IMBRUVICA [Suspect]
     Active Substance: IBRUTINIB
     Indication: Mantle cell lymphoma
     Dosage: FIRST ADMIN DATE: 2013 OR 2014
     Route: 048
     Dates: start: 2013, end: 2019
  4. BRUKINSA [Concomitant]
     Active Substance: ZANUBRUTINIB
     Indication: Mantle cell lymphoma
     Dosage: FORM STRENGTH: 80 MG
     Dates: start: 20240709

REACTIONS (5)
  - Cardiac failure congestive [Recovered/Resolved]
  - Mantle cell lymphoma recurrent [Recovering/Resolving]
  - Off label use [Not Recovered/Not Resolved]
  - Weight decreased [Recovered/Resolved]
  - Pericardial effusion [Recovered/Resolved]

NARRATIVE: CASE EVENT DATE: 20200101
